FAERS Safety Report 7144751-7 (Version None)
Quarter: 2010Q4

REPORT INFORMATION
  Report Type: 
  Country: None (occurrence: None)
  Receive Date: 20101119
  Receipt Date: 20100212
  Transmission Date: 20110411
  Serious: Yes (Hospitalization)
  Sender: FDA-Public Use
  Company Number: UTC-000831

PATIENT
  Age: 74 Year
  Sex: Male
  Weight: 136.1 kg

DRUGS (5)
  1. TYVASO [Suspect]
     Indication: PULMONARY ARTERIAL HYPERTENSION
     Dosage: (144 MCG, 1 D), INHALATION
     Route: 055
     Dates: start: 20091023, end: 20100120
  2. FERROUS SULFATE TAB [Concomitant]
  3. ALLOPURINOL [Concomitant]
  4. LASIX [Concomitant]
  5. METOLAZONE [Concomitant]

REACTIONS (6)
  - ASTHENIA [None]
  - BENCE JONES PROTEIN URINE PRESENT [None]
  - DIARRHOEA [None]
  - GASTROINTESTINAL HAEMORRHAGE [None]
  - NAUSEA [None]
  - VOMITING [None]
